FAERS Safety Report 21448603 (Version 2)
Quarter: 2022Q4

REPORT INFORMATION
  Report Type: Report from Study
  Country: GB (occurrence: GB)
  Receive Date: 20221013
  Receipt Date: 20221101
  Transmission Date: 20230112
  Serious: Yes (Hospitalization)
  Sender: FDA-Public Use
  Company Number: GB-ABBVIE-22K-167-4314079-00

PATIENT
  Age: 76 Year
  Sex: Female

DRUGS (5)
  1. CARBIDOPA\LEVODOPA [Suspect]
     Active Substance: CARBIDOPA\LEVODOPA
     Indication: Parkinson^s disease
     Dosage: MD -7.5, CR 6.7, ED 2.2
     Route: 050
  2. CARBIDOPA\LEVODOPA [Suspect]
     Active Substance: CARBIDOPA\LEVODOPA
     Dosage: MD 4.5, NIGHT PUMP CR 1.5 MD 3.0 (AS A PRIME AFTER FLUSHING) DAY PUMP:
     Route: 050
  3. CARBIDOPA\LEVODOPA [Suspect]
     Active Substance: CARBIDOPA\LEVODOPA
     Dosage: DUODOPA 20MGS/5MGS; MD: 4.5; NIGHT 3.0; CR:6.7 NIGHT1.5 ; ED:2.2 NIGHT 0
     Route: 050
  4. BENSERAZIDE HYDROCHLORIDE\LEVODOPA [Concomitant]
     Active Substance: BENSERAZIDE HYDROCHLORIDE\LEVODOPA
     Indication: Parkinsonism
     Dosage: FREQUENCY TEXT: 1 IN MORNING?12.5/50MG
  5. CO CARELDOPA [Concomitant]
     Indication: Parkinson^s disease
     Dosage: 25/100MG MR TAKEN AT 15:30 AND 21:00

REACTIONS (18)
  - Abscess [Not Recovered/Not Resolved]
  - Dystonia [Not Recovered/Not Resolved]
  - Muscle rigidity [Not Recovered/Not Resolved]
  - Stoma site erythema [Not Recovered/Not Resolved]
  - Constipation [Recovered/Resolved]
  - Dyskinesia [Recovering/Resolving]
  - Stoma site pain [Recovered/Resolved]
  - Stoma site pain [Recovered/Resolved]
  - Nightmare [Not Recovered/Not Resolved]
  - Fungal skin infection [Not Recovered/Not Resolved]
  - Embedded device [Not Recovered/Not Resolved]
  - Tremor [Not Recovered/Not Resolved]
  - Mobility decreased [Not Recovered/Not Resolved]
  - Depressed mood [Not Recovered/Not Resolved]
  - Stoma site discharge [Not Recovered/Not Resolved]
  - Stoma site pain [Not Recovered/Not Resolved]
  - Duodeno-jejunal bypass sleeve therapy [Not Recovered/Not Resolved]
  - Weight decreased [Not Recovered/Not Resolved]

NARRATIVE: CASE EVENT DATE: 20220101
